FAERS Safety Report 6115868-0 (Version None)
Quarter: 2009Q1

REPORT INFORMATION
  Report Type: 
  Country: None (occurrence: None)
  Receive Date: 20090311
  Receipt Date: 20090306
  Transmission Date: 20090719
  Serious: Yes (Other)
  Sender: FDA-Public Use
  Company Number: 186572USA

PATIENT
  Age: 16 Year
  Sex: Male

DRUGS (2)
  1. CLARAVIS [Suspect]
     Indication: ACNE CYSTIC
     Dosage: 40 MG, (20 MG, 1 IN 12 HR), ORAL
     Route: 048
     Dates: start: 20090119, end: 20090119
  2. PLASMA [Concomitant]

REACTIONS (2)
  - HEADACHE [None]
  - NERVOUS SYSTEM DISORDER [None]
